FAERS Safety Report 9765044 (Version 1)
Quarter: 2013Q4

REPORT INFORMATION
  Report Type: Spontaneous
  Country: US (occurrence: None)
  Receive Date: 20131216
  Receipt Date: 20131216
  Transmission Date: 20140711
  Serious: No
  Sender: FDA-Public Use
  Company Number: None

PATIENT
  Age: 32 Year
  Sex: Female
  Weight: 54.43 kg

DRUGS (1)
  1. HYDROCODON/HOMATR [Suspect]
     Indication: ASTHMA
     Dosage: 1 TEASPOON TWICE DAILY TAKEN BY MOUTH
     Route: 048
     Dates: start: 20131212, end: 20131213

REACTIONS (7)
  - Fatigue [None]
  - Hallucination [None]
  - Nightmare [None]
  - Pruritus [None]
  - Urticaria [None]
  - Swelling face [None]
  - Paranoia [None]
